FAERS Safety Report 9796520 (Version 3)
Quarter: 2014Q1

REPORT INFORMATION
  Report Type: Spontaneous
  Country: US (occurrence: US)
  Receive Date: 20140103
  Receipt Date: 20140115
  Transmission Date: 20141002
  Serious: Yes (Death, Life-Threatening, Hospitalization, Disabling, Other)
  Sender: FDA-Public Use
  Company Number: US-009507513-1003USA01793

PATIENT
  Sex: Male
  Weight: 103.86 kg

DRUGS (5)
  1. JANUVIA [Suspect]
     Indication: DIABETES MELLITUS
     Dosage: 100 MG, QD
     Route: 048
     Dates: start: 20070724, end: 20100312
  2. LIPITOR [Concomitant]
     Indication: HYPERLIPIDAEMIA
     Dosage: 20 MG, HS
     Route: 048
     Dates: start: 2000, end: 200909
  3. LISINOPRIL [Concomitant]
     Indication: HYPERTENSION
     Dosage: 20 MG, QD
     Route: 048
     Dates: start: 1999, end: 201002
  4. CARAFATE [Concomitant]
     Dosage: 1 G, HS
     Route: 048
  5. MK-0745 [Concomitant]
     Dosage: 5 MG, PRN
     Route: 048

REACTIONS (17)
  - Pancreatic carcinoma metastatic [Fatal]
  - Diplopia [Unknown]
  - Renal failure acute [Unknown]
  - Nephropathy [Unknown]
  - Insulin resistance [Unknown]
  - Back pain [Unknown]
  - Neuritis [Unknown]
  - Vertigo [Unknown]
  - Labyrinthitis [Unknown]
  - Deafness neurosensory [Unknown]
  - Nystagmus [Unknown]
  - Haemorrhoids [Unknown]
  - Gastrooesophageal reflux disease [Unknown]
  - Rhinitis allergic [Unknown]
  - Skin neoplasm excision [Unknown]
  - Atrial fibrillation [Unknown]
  - Gastritis erosive [Unknown]
